FAERS Safety Report 15492745 (Version 1)
Quarter: 2018Q4

REPORT INFORMATION
  Report Type: Spontaneous
  Country: US (occurrence: US)
  Receive Date: 20181012
  Receipt Date: 20181012
  Transmission Date: 20190205
  Serious: No
  Sender: FDA-Public Use
  Company Number: US-PFIZER INC-2018405854

PATIENT
  Sex: Female

DRUGS (1)
  1. CHANTIX [Suspect]
     Active Substance: VARENICLINE TARTRATE
     Dosage: UNK

REACTIONS (7)
  - Dysphemia [Unknown]
  - Headache [Unknown]
  - Conversion disorder [Unknown]
  - Memory impairment [Unknown]
  - Vision blurred [Unknown]
  - Balance disorder [Unknown]
  - Confusional state [Unknown]
